FAERS Safety Report 9390719 (Version 1)
Quarter: 2013Q3

REPORT INFORMATION
  Report Type: Spontaneous
  Country: US (occurrence: None)
  Receive Date: 20130705
  Receipt Date: 20130705
  Transmission Date: 20140515
  Serious: Yes (Other)
  Sender: FDA-Public Use
  Company Number: None

PATIENT
  Age: 67 Year
  Sex: Female
  Weight: 61.24 kg

DRUGS (2)
  1. CLINDAMYCIN [Suspect]
     Indication: SUTURE INSERTION
     Dosage: 1 CAPSULE
     Route: 048
     Dates: start: 20130423, end: 20130425
  2. CLINDAMYCIN [Suspect]
     Indication: LIP DISORDER
     Dosage: 1 CAPSULE
     Route: 048
     Dates: start: 20130423, end: 20130425

REACTIONS (3)
  - Clostridium difficile colitis [None]
  - Weight decreased [None]
  - Hypophagia [None]
